FAERS Safety Report 6980317-7 (Version None)
Quarter: 2010Q3

REPORT INFORMATION
  Report Type: 
  Country: None (occurrence: None)
  Receive Date: 20100824
  Receipt Date: 20100623
  Transmission Date: 20110219
  Serious: No
  Sender: FDA-Public Use
  Company Number: 310803

PATIENT
  Age: 72 Year
  Sex: Male

DRUGS (17)
  1. VICTOZA [Suspect]
     Indication: TYPE 2 DIABETES MELLITUS
     Dosage: 1.2 MG, QD, SUBCUTANEOUS
     Route: 058
     Dates: start: 20100610
  2. ASPIRIN [Concomitant]
  3. MAGNESIUM (MAGNESIUM) [Concomitant]
  4. PRESERVISION LUTEIN EYE VITA.+MIN.SUP.SOFTG. (ASCORBIC ACID, CUPRIC OX [Concomitant]
  5. PANTANOL (OLOPATADINE) [Concomitant]
  6. FUROSEMIDE [Concomitant]
  7. PRILOSEC [Concomitant]
  8. POTASSIUM (POTASSIUM) [Concomitant]
  9. ALLEGRA /01314201/ (FEXOFENADINE) [Concomitant]
  10. ZOLOFT [Concomitant]
  11. LIPITOR [Concomitant]
  12. TOPROL-XL [Concomitant]
  13. COUMADIN [Concomitant]
  14. PRO-AIR (PROCATEROL HYDROCHLORIDE) [Concomitant]
  15. ADVAIR DISKUS 100/50 [Concomitant]
  16. LEVEMIR [Concomitant]
  17. NOVOLOG [Concomitant]

REACTIONS (6)
  - BALANCE DISORDER [None]
  - BLOOD GLUCOSE INCREASED [None]
  - GAIT DISTURBANCE [None]
  - HEADACHE [None]
  - SOMNOLENCE [None]
  - VISUAL IMPAIRMENT [None]
